FAERS Safety Report 5581514-8 (Version None)
Quarter: 2008Q1

REPORT INFORMATION
  Report Type: 
  Country: None (occurrence: None)
  Receive Date: 20080104
  Receipt Date: 20071220
  Transmission Date: 20080703
  Serious: Yes (Other)
  Sender: FDA-Public Use
  Company Number: GB-ROCHE-539237

PATIENT
  Age: 71 Year
  Sex: Female

DRUGS (12)
  1. ORLISTAT [Suspect]
     Indication: DRUG USE FOR UNKNOWN INDICATION
     Route: 065
  2. ASPIRIN [Concomitant]
     Dosage: DOSAGE: ONE TAKEN IN THE MORNING
  3. BENDROFLUMETHIAZIDE [Concomitant]
     Dosage: DOSAGE: ONE TAKEN IN THE MORNING
  4. OMEPRAZOLE [Concomitant]
     Dosage: DOSAGE: ONE TAKEN IN THE MORNING
  5. ATORVASTATIN [Concomitant]
     Dosage: DOSAGE: ONE TAKEN AT NIGHT
  6. 1 CONCOMITANT DRUG [Concomitant]
     Dosage: DRUG: ZILPODEM, DOSAGE: ONE TAKEN AT NIGHT
  7. MIRTAZAPINE [Concomitant]
     Dosage: DOSAGE: ONE TAKEN AT NIGHT
  8. ALBUTEROL [Concomitant]
     Dosage: DOSAGE: TAKEN AT NIGHT
     Route: 055
  9. DOXAZOSIN [Concomitant]
     Dosage: DOSAGE: ONE TAKEN DAILY
  10. IRBESARTAN [Concomitant]
     Dosage: DOSAGE: ONE TAKEN DAILY
  11. NITROLINGUAL [Concomitant]
  12. VITAMIN B-12 [Concomitant]

REACTIONS (1)
  - SKIN CANCER [None]
